FAERS Safety Report 8460392-3 (Version None)
Quarter: 2012Q2

REPORT INFORMATION
  Report Type: 
  Country: None (occurrence: None)
  Receive Date: 20120323
  Receipt Date: 20111114
  Transmission Date: 20120825
  Serious: Yes (Other)
  Sender: FDA-Public Use
  Company Number: 163-21880-11091597

PATIENT
  Age: 80 Year
  Sex: Female
  Weight: 78.0187 kg

DRUGS (16)
  1. PHENERGAN [Concomitant]
  2. MAGNESIUM (MAGNESIUM) [Concomitant]
  3. VITAMIN D [Concomitant]
  4. ASPIRIN [Concomitant]
  5. AMBIEN [Concomitant]
  6. HYDROCHLOROTHIAZIDE [Concomitant]
  7. MILK OF MAGNESIA TAB [Concomitant]
  8. VITAMIN C (ASCORBIC ACID0 [Concomitant]
  9. REVLIMID [Suspect]
     Indication: MULTIPLE MYELOMA
     Dosage: 15 MG, QD X 21 DAYS, PO
     Route: 048
     Dates: start: 20100428
  10. ATENOLOL [Concomitant]
  11. BENICAR [Concomitant]
  12. LYRICA [Concomitant]
  13. DECADRON [Concomitant]
  14. OXYCODONE HCL [Concomitant]
  15. ZOMETA [Concomitant]
  16. PLAVIX [Concomitant]

REACTIONS (2)
  - CONTUSION [None]
  - HAEMORRHAGE [None]
